FAERS Safety Report 19355338 (Version 1)
Quarter: 2021Q2

REPORT INFORMATION
  Report Type: Spontaneous
  Country: US (occurrence: US)
  Receive Date: 20210601
  Receipt Date: 20210601
  Transmission Date: 20210717
  Serious: Yes (Hospitalization)
  Sender: FDA-Public Use
  Company Number: None

PATIENT
  Age: 68 Year
  Sex: Female
  Weight: 50.4 kg

DRUGS (1)
  1. ONGENTYS [Suspect]
     Active Substance: OPICAPONE
     Indication: PARKINSON^S DISEASE
     Dosage: ?          QUANTITY:1 CAPSULE(S);?
     Route: 048
     Dates: start: 20210523, end: 20210525

REACTIONS (12)
  - Dyspnoea [None]
  - Dehydration [None]
  - Nausea [None]
  - Anxiety [None]
  - Muscle spasms [None]
  - Dystonia [None]
  - Dyskinesia [None]
  - Throat tightness [None]
  - Dry mouth [None]
  - Vomiting [None]
  - Cardiac flutter [None]
  - Dizziness [None]

NARRATIVE: CASE EVENT DATE: 20210525
